FAERS Safety Report 6486482-2 (Version None)
Quarter: 2009Q4

REPORT INFORMATION
  Report Type: 
  Country: None (occurrence: None)
  Receive Date: 20091210
  Receipt Date: 20091201
  Transmission Date: 20100525
  Serious: Yes (Other)
  Sender: FDA-Public Use
  Company Number: US-JNJFOC-20091201283

PATIENT
  Sex: Female

DRUGS (2)
  1. DOXORUBICIN HCL [Suspect]
     Dosage: 4 TH INFUSION
     Route: 058
  2. DOXORUBICIN HCL [Suspect]
     Indication: OVARIAN CANCER
     Dosage: INFUSIONS 1 TO 3
     Route: 058

REACTIONS (3)
  - GOITRE [None]
  - PULMONARY MASS [None]
  - VISION BLURRED [None]
